FAERS Safety Report 7945360-X (Version None)
Quarter: 2011Q4

REPORT INFORMATION
  Report Type: 
  Country: None (occurrence: None)
  Receive Date: 20111129
  Receipt Date: 20110503
  Transmission Date: 20120403
  Serious: No
  Sender: FDA-Public Use
  Company Number: US-GLAXOSMITHKLINE-A0925576A

PATIENT
  Sex: Female

DRUGS (3)
  1. CELEXA [Concomitant]
  2. XANAX [Concomitant]
  3. WELLBUTRIN SR [Suspect]
     Indication: PRODUCT USED FOR UNKNOWN INDICATION
     Route: 048
     Dates: start: 20110408

REACTIONS (3)
  - DISTURBANCE IN ATTENTION [None]
  - IRRITABILITY [None]
  - IMPAIRED DRIVING ABILITY [None]
